FAERS Safety Report 9194635 (Version 1)
Quarter: 2013Q1

REPORT INFORMATION
  Report Type: Spontaneous
  Country: US (occurrence: US)
  Receive Date: 20130328
  Receipt Date: 20130328
  Transmission Date: 20140127
  Serious: No
  Sender: FDA-Public Use
  Company Number: US-ALLERGAN-1209562US

PATIENT
  Age: 59 Year
  Sex: Female

DRUGS (4)
  1. LATISSE 0.03% [Suspect]
     Indication: GROWTH OF EYELASHES
     Dosage: 2 GTT, QAM
     Route: 061
     Dates: start: 201204
  2. RESTASIS? [Concomitant]
     Indication: DRY EYE
     Dosage: 2 GTT, BID
     Route: 047
  3. REFRESH TEARS [Concomitant]
     Indication: DRY EYE
     Dosage: UNK, PRN
     Route: 047
  4. REFRESH PM                         /00880201/ [Concomitant]
     Indication: DRY EYE
     Dosage: UNK UNK, PRN
     Route: 047

REACTIONS (3)
  - Inappropriate schedule of drug administration [Unknown]
  - Trichorrhexis [Not Recovered/Not Resolved]
  - Drug ineffective [Not Recovered/Not Resolved]
